FAERS Safety Report 5118106-0 (Version None)
Quarter: 2006Q3

REPORT INFORMATION
  Report Type: 
  Country: None (occurrence: None)
  Receive Date: 20060926
  Receipt Date: 20060911
  Transmission Date: 20061208
  Serious: Yes (Death, Other)
  Sender: FDA-Public Use
  Company Number: FR200609002282

PATIENT
  Sex: Female

DRUGS (2)
  1. FORTEO [Suspect]
     Dosage: SUBCUTANEOUS
     Route: 058
     Dates: start: 20040922
  2. FORTEO PEN (FORTEO PEN ) PEN, DISPOSABLE [Concomitant]

REACTIONS (4)
  - HAEMATURIA [None]
  - HYDRONEPHROSIS [None]
  - POST PROCEDURAL COMPLICATION [None]
  - RADIATION INJURY [None]
